FAERS Safety Report 11049393 (Version 2)
Quarter: 2015Q2

REPORT INFORMATION
  Report Type: Spontaneous
  Country: GR (occurrence: GR)
  Receive Date: 20150420
  Receipt Date: 20150516
  Transmission Date: 20150821
  Serious: Yes (Disabling, Other)
  Sender: FDA-Public Use
  Company Number: GR-B.I. PHARMACEUTICALS,INC./RIDGEFIELD-2015-BI-21218GD

PATIENT
  Age: 29 Year
  Sex: Male

DRUGS (1)
  1. PRADAXA [Suspect]
     Active Substance: DABIGATRAN ETEXILATE MESYLATE
     Indication: ATRIAL FIBRILLATION
     Dosage: 220 MG
     Route: 048

REACTIONS (6)
  - Quadranopia [Recovered/Resolved]
  - Blindness [Recovered/Resolved]
  - Headache [Recovered/Resolved]
  - Hemianopia homonymous [Recovered/Resolved]
  - Hepatotoxicity [Recovered/Resolved]
  - Visual field defect [Recovered/Resolved]
